FAERS Safety Report 7197001-X (Version None)
Quarter: 2010Q4

REPORT INFORMATION
  Report Type: 
  Country: None (occurrence: None)
  Receive Date: 20101224
  Receipt Date: 20101222
  Transmission Date: 20110411
  Serious: Yes (Other)
  Sender: FDA-Public Use
  Company Number: BR-SHIRE-SPV1-2010-01955

PATIENT
  Sex: Male
  Weight: 23.8 kg

DRUGS (1)
  1. ELAPRASE [Suspect]
     Indication: MUCOPOLYSACCHARIDOSIS II
     Dosage: 12 MG, 1X/WEEK
     Route: 041
     Dates: start: 20071004

REACTIONS (8)
  - CHILLS [None]
  - CYANOSIS [None]
  - HYPERTHERMIA [None]
  - INFUSION RELATED REACTION [None]
  - MOANING [None]
  - MUSCLE SPASMS [None]
  - SOMNOLENCE [None]
  - TREMOR [None]
